FAERS Safety Report 22112937 (Version 1)
Quarter: 2023Q1

REPORT INFORMATION
  Report Type: Report from Study
  Country: US (occurrence: US)
  Receive Date: 20230320
  Receipt Date: 20230320
  Transmission Date: 20230418
  Serious: Yes (Other)
  Sender: FDA-Public Use
  Company Number: US-ABBVIE-4344672

PATIENT
  Sex: Female

DRUGS (1)
  1. HUMIRA [Suspect]
     Active Substance: ADALIMUMAB
     Indication: Rheumatoid arthritis
     Route: 058
     Dates: start: 20110301

REACTIONS (12)
  - Knee arthroplasty [Recovering/Resolving]
  - Diabetes mellitus [Recovering/Resolving]
  - Neck pain [Recovering/Resolving]
  - Fall [Recovering/Resolving]
  - Hand deformity [Recovering/Resolving]
  - Arthralgia [Recovering/Resolving]
  - Fall [Recovered/Resolved]
  - Arthralgia [Recovering/Resolving]
  - Hypertension [Recovering/Resolving]
  - Limb injury [Recovering/Resolving]
  - Arthropathy [Recovering/Resolving]
  - Pain in extremity [Recovering/Resolving]

NARRATIVE: CASE EVENT DATE: 20200101
